FAERS Safety Report 9198588 (Version 1)
Quarter: 2013Q1

REPORT INFORMATION
  Report Type: Spontaneous
  Country: US (occurrence: None)
  Receive Date: 20130327
  Receipt Date: 20130327
  Transmission Date: 20140127
  Serious: Yes (Life-Threatening, Hospitalization)
  Sender: FDA-Public Use
  Company Number: None

PATIENT
  Age: 59 Year
  Sex: Male
  Weight: 76.9 kg

DRUGS (1)
  1. PEGINTERFERON [Suspect]
     Indication: HEPATITIS C
     Dates: start: 20120607, end: 20130219

REACTIONS (5)
  - Hypoxia [None]
  - Respiratory failure [None]
  - Pneumonia [None]
  - Pneumonitis [None]
  - Transfusion [None]
